FAERS Safety Report 5634496-4 (Version None)
Quarter: 2008Q1

REPORT INFORMATION
  Report Type: 
  Country: None (occurrence: None)
  Receive Date: 20080222
  Receipt Date: 20080211
  Transmission Date: 20080703
  Serious: Yes (Hospitalization)
  Sender: FDA-Public Use
  Company Number: HQWYE220019SEP07

PATIENT
  Age: 29 Year
  Sex: Male

DRUGS (1)
  1. EFFEXOR [Suspect]
     Route: 048
     Dates: start: 20070101

REACTIONS (3)
  - ANGER [None]
  - HOMICIDAL IDEATION [None]
  - SUICIDAL IDEATION [None]
